FAERS Safety Report 7054337-0 (Version None)
Quarter: 2010Q4

REPORT INFORMATION
  Report Type: 
  Country: None (occurrence: None)
  Receive Date: 20101015
  Receipt Date: 20100930
  Transmission Date: 20110411
  Serious: Yes (Hospitalization)
  Sender: FDA-Public Use
  Company Number: AUR-APL-2010-02493

PATIENT
  Age: 67 Year
  Sex: Female

DRUGS (15)
  1. METFORMIN [Suspect]
     Indication: TYPE 2 DIABETES MELLITUS
     Dosage: 3000MG - DAILY - ORAL
     Route: 048
     Dates: end: 20100707
  2. ALTEIS (OLMESARTAN) [Suspect]
     Indication: HYPERTENSION
     Dosage: 30MG - DAILY - ORAL
     Route: 048
     Dates: end: 20100707
  3. AUGMENTIN '125' [Suspect]
     Indication: ERYSIPELAS
     Dosage: 500/125MG - QID-ORAL
     Route: 048
     Dates: start: 20100702, end: 20100707
  4. BRISTOPEN (OXACILLIN) [Suspect]
     Indication: ERYSIPELAS
     Dosage: 1G - BID - ORAL
     Route: 048
     Dates: start: 20100630, end: 20100702
  5. AMARYL [Suspect]
     Indication: TYPE 2 DIABETES MELLITUS
     Dosage: 4MG - DAILY - ORAL
     Route: 048
     Dates: end: 20100707
  6. INSULIN DETEMIR [Suspect]
     Indication: TYPE 2 DIABETES MELLITUS
     Dosage: 40IU-QD
     Dates: end: 20100705
  7. INSULIN DETEMIR [Concomitant]
     Indication: TYPE 2 DIABETES MELLITUS
  8. FLUDROCORTISONIE [Concomitant]
  9. ACETAMINOPHEN [Concomitant]
  10. PRAVASTATIN [Concomitant]
  11. BONIVA [Concomitant]
  12. OROCAL (CALCIUM CARBONATE) [Concomitant]
  13. DESLORATADINE [Concomitant]
  14. LEVOTHYROX (LEVOTHYROXINE) [Concomitant]
  15. HYDROCORTISONE [Concomitant]

REACTIONS (11)
  - ACCIDENTAL OVERDOSE [None]
  - DEHYDRATION [None]
  - DIARRHOEA [None]
  - GENERAL PHYSICAL HEALTH DETERIORATION [None]
  - HYPERKALAEMIA [None]
  - HYPOGLYCAEMIA [None]
  - HYPONATRAEMIA [None]
  - KETONURIA [None]
  - LACTIC ACIDOSIS [None]
  - RENAL FAILURE ACUTE [None]
  - VOMITING [None]
